FAERS Safety Report 20875529 (Version 2)
Quarter: 2022Q2

REPORT INFORMATION
  Report Type: Spontaneous
  Country: US (occurrence: US)
  Receive Date: 20220526
  Receipt Date: 20220611
  Transmission Date: 20220721
  Serious: No
  Sender: FDA-Public Use
  Company Number: US-TEVA-2022-US-2037924

PATIENT
  Age: 21 Year
  Sex: Female
  Weight: 99.79 kg

DRUGS (9)
  1. CINQAIR [Suspect]
     Active Substance: RESLIZUMAB
     Indication: Asthma
     Route: 042
     Dates: start: 202108, end: 202202
  2. PROAIR HFA [Interacting]
     Active Substance: ALBUTEROL SULFATE
     Route: 065
  3. ALBUTEROL [Concomitant]
     Active Substance: ALBUTEROL
     Dosage: EVERY 2-4 HOURS AS NEEDED
  4. PREDNISONE [Concomitant]
     Active Substance: PREDNISONE
  5. COMBIVENT [Concomitant]
     Active Substance: ALBUTEROL SULFATE\IPRATROPIUM BROMIDE
  6. EPIPEN [Concomitant]
     Active Substance: EPINEPHRINE
  7. BUDESONIDE [Concomitant]
     Active Substance: BUDESONIDE
  8. ADVAIR HFA [Concomitant]
     Active Substance: FLUTICASONE PROPIONATE\SALMETEROL XINAFOATE
     Dosage: 230/21
  9. SPIRIVA [Concomitant]
     Active Substance: TIOTROPIUM BROMIDE MONOHYDRATE

REACTIONS (12)
  - Fractional exhaled nitric oxide increased [Unknown]
  - Depressed mood [Recovered/Resolved]
  - Dizziness [Recovered/Resolved]
  - Malaise [Recovered/Resolved]
  - Instillation site complication [Unknown]
  - Infusion site extravasation [Unknown]
  - Drug ineffective [Unknown]
  - Inappropriate schedule of product administration [Unknown]
  - Product dose omission issue [Unknown]
  - Contusion [Unknown]
  - Nausea [Unknown]
  - Fatigue [Unknown]

NARRATIVE: CASE EVENT DATE: 20210901
